FAERS Safety Report 17036865 (Version 2)
Quarter: 2019Q4

REPORT INFORMATION
  Report Type: Spontaneous
  Country: HU (occurrence: HU)
  Receive Date: 20191115
  Receipt Date: 20191216
  Transmission Date: 20200122
  Serious: Yes (Other)
  Sender: FDA-Public Use
  Company Number: HU-PFIZER INC-2019488200

PATIENT
  Age: 47 Year
  Sex: Male

DRUGS (6)
  1. DALACIN [Suspect]
     Active Substance: CLINDAMYCIN
     Indication: PYREXIA
     Dosage: 300 MG, 3X/DAY
  2. ROCEPHIN [Suspect]
     Active Substance: CEFTRIAXONE SODIUM
     Indication: PYREXIA
     Dosage: 2 G, 1X/DAY
  3. GENTAMICIN. [Suspect]
     Active Substance: GENTAMICIN
     Indication: PYREXIA
     Dosage: 80 MG, 3X/DAY
  4. METRONIDAZOLE. [Concomitant]
     Active Substance: METRONIDAZOLE
     Dosage: 500 MG, 2X/DAY
  5. TAZOCIN [Concomitant]
     Active Substance: PIPERACILLIN SODIUM\TAZOBACTAM SODIUM
     Dosage: 4500 MG, 3X/DAY
  6. DALACIN [Suspect]
     Active Substance: CLINDAMYCIN
     Dosage: 300 MG, UNK

REACTIONS (8)
  - Gallbladder oedema [Recovered/Resolved]
  - Pathogen resistance [Unknown]
  - Pyrexia [Recovered/Resolved]
  - Prothrombin level increased [Unknown]
  - Platelet count decreased [Unknown]
  - Liver abscess [Recovered/Resolved]
  - Blood culture positive [Unknown]
  - Bacterial infection [Unknown]
